FAERS Safety Report 9737000 (Version 2)
Quarter: 2015Q3

REPORT INFORMATION
  Report Type: Spontaneous
  Country: US (occurrence: US)
  Receive Date: 20131206
  Receipt Date: 20150804
  Transmission Date: 20151125
  Serious: No
  Sender: FDA-Public Use
  Company Number: US-GILEAD-2009-0023695

PATIENT
  Age: 52 Year
  Sex: Female

DRUGS (6)
  1. FUROSEMIDE. [Concomitant]
     Active Substance: FUROSEMIDE
  2. POTASSIUM [Concomitant]
     Active Substance: POTASSIUM
  3. DIGOXIN. [Concomitant]
     Active Substance: DIGOXIN
  4. REVATIO [Concomitant]
     Active Substance: SILDENAFIL CITRATE
  5. LISINOPRIL. [Concomitant]
     Active Substance: LISINOPRIL
  6. LETAIRIS [Suspect]
     Active Substance: AMBRISENTAN
     Indication: PULMONARY ARTERIAL HYPERTENSION

REACTIONS (1)
  - Flushing [Unknown]
